FAERS Safety Report 4989250-3 (Version None)
Quarter: 2006Q2

REPORT INFORMATION
  Report Type: 
  Country: None (occurrence: None)
  Receive Date: 20060425
  Receipt Date: 20060417
  Transmission Date: 20061013
  Serious: Yes (Other)
  Sender: FDA-Public Use
  Company Number: 2006040608

PATIENT
  Age: 78 Year
  Sex: Male
  Weight: 66.2252 kg

DRUGS (3)
  1. XALATAN [Suspect]
     Indication: GLAUCOMA
     Dosage: 3 MCG (1.5 MCG, 2 IN 1 D), OPHTHALMIC
     Route: 047
  2. VASOTEC [Concomitant]
  3. FISH OIL [Concomitant]

REACTIONS (2)
  - DIABETES MELLITUS [None]
  - DRUG DOSE OMISSION [None]
